FAERS Safety Report 12306192 (Version 10)
Quarter: 2022Q4

REPORT INFORMATION
  Report Type: Spontaneous
  Country: US (occurrence: US)
  Receive Date: 20160426
  Receipt Date: 20221128
  Transmission Date: 20230113
  Serious: Yes (Other)
  Sender: FDA-Public Use
  Company Number: US-PFIZER INC-2016226395

PATIENT
  Age: 57 Year
  Sex: Male
  Weight: 113 kg

DRUGS (6)
  1. XELJANZ [Suspect]
     Active Substance: TOFACITINIB CITRATE
     Indication: Rheumatoid arthritis
     Dosage: 5 MG, 1X/DAY
  2. XELJANZ [Suspect]
     Active Substance: TOFACITINIB CITRATE
     Indication: Chronic cutaneous lupus erythematosus
     Dosage: 5 MG, 2X/DAY
  3. XELJANZ [Suspect]
     Active Substance: TOFACITINIB CITRATE
     Dosage: 5 MG, 1X/DAY
     Route: 048
     Dates: start: 201510
  4. SPIRONOLACTONE [Concomitant]
     Active Substance: SPIRONOLACTONE
     Indication: Cardiac disorder
     Dosage: 25 MG, 1X/DAY
     Dates: start: 20160725
  5. SPIRONOLACTONE [Concomitant]
     Active Substance: SPIRONOLACTONE
     Indication: Rheumatoid arthritis
  6. OMEPRAZOLE [Concomitant]
     Active Substance: OMEPRAZOLE
     Indication: Gastric disorder
     Dosage: 40 MG, 2X/DAY (TWICE DAILY)

REACTIONS (12)
  - Asthma [Unknown]
  - Condition aggravated [Not Recovered/Not Resolved]
  - Cataract [Unknown]
  - Pulmonary hypertension [Unknown]
  - Nasopharyngitis [Unknown]
  - Immune system disorder [Unknown]
  - Sciatica [Recovering/Resolving]
  - Neutrophil count decreased [Unknown]
  - Rash [Unknown]
  - Full blood count decreased [Unknown]
  - Hypersensitivity [Unknown]
  - Oropharyngeal discomfort [Unknown]

NARRATIVE: CASE EVENT DATE: 20160701
